FAERS Safety Report 24459601 (Version 1)
Quarter: 2024Q4

REPORT INFORMATION
  Report Type: Report from Study
  Country: US (occurrence: US)
  Receive Date: 20241018
  Receipt Date: 20241018
  Transmission Date: 20250115
  Serious: No
  Sender: ROCHE
  Company Number: US-ROCHE-3553584

PATIENT
  Age: 26 Year
  Sex: Male

DRUGS (2)
  1. RITUXAN [Suspect]
     Active Substance: RITUXIMAB
     Indication: Acute febrile neutrophilic dermatosis
     Dosage: DATE OF SERVICE: 09/MAR/2023, 23/MAR/2023
     Route: 065
  2. RITUXAN [Suspect]
     Active Substance: RITUXIMAB
     Dosage: SINGLE USE VIAL
     Route: 065
     Dates: start: 20230125, end: 20240125

REACTIONS (2)
  - Off label use [Unknown]
  - No adverse event [Unknown]
